FAERS Safety Report 6453935-2 (Version None)
Quarter: 2009Q4

REPORT INFORMATION
  Report Type: 
  Country: None (occurrence: None)
  Receive Date: 20091117
  Receipt Date: 20091111
  Transmission Date: 20100525
  Serious: Yes (Death, Hospitalization)
  Sender: FDA-Public Use
  Company Number: SP01758

PATIENT
  Age: 77 Year
  Sex: Female
  Weight: 50.8029 kg

DRUGS (10)
  1. OSMOPREP [Suspect]
     Indication: COLONOSCOPY
     Dosage: (32 TABLETS),ORAL
     Route: 048
     Dates: start: 20061112, end: 20061113
  2. LISINOPRIL [Concomitant]
  3. DIOVAN HCT [Concomitant]
  4. NORVASC [Concomitant]
  5. DIPYRIDAMOLE [Concomitant]
  6. SYNTHROID [Concomitant]
  7. XALATAN [Concomitant]
  8. TIMOPTIC [Concomitant]
  9. TYLENOL (CAPLET) [Concomitant]
  10. NEXIUM [Concomitant]

REACTIONS (22)
  - ABDOMINAL PAIN [None]
  - ASPIRATION [None]
  - ATELECTASIS [None]
  - BLOOD CALCIUM DECREASED [None]
  - BLOOD POTASSIUM DECREASED [None]
  - CHEST PAIN [None]
  - DIVERTICULITIS [None]
  - DYSPNOEA [None]
  - EMPYEMA [None]
  - HAEMODIALYSIS [None]
  - HYPOAESTHESIA [None]
  - LETHARGY [None]
  - NEPHROCALCINOSIS [None]
  - NOCARDIA SEPSIS [None]
  - PARAESTHESIA [None]
  - PLEURAL EFFUSION [None]
  - PNEUMONIA [None]
  - PULMONARY MASS [None]
  - RENAL FAILURE ACUTE [None]
  - RESPIRATORY ARREST [None]
  - TREMOR [None]
  - TUBULOINTERSTITIAL NEPHRITIS [None]
